FAERS Safety Report 5270337-5 (Version None)
Quarter: 2007Q1

REPORT INFORMATION
  Report Type: 
  Country: None (occurrence: None)
  Receive Date: 20070320
  Receipt Date: 20070308
  Transmission Date: 20070707
  Serious: Yes (Other)
  Sender: FDA-Public Use
  Company Number: US-PFIZER INC-2007006457

PATIENT
  Sex: Female
  Weight: 77.1 kg

DRUGS (7)
  1. LIPITOR [Suspect]
     Indication: BLOOD CHOLESTEROL INCREASED
     Route: 048
     Dates: start: 20070102, end: 20070108
  2. LIPITOR [Suspect]
     Indication: HYPERCHOLESTEROLAEMIA
  3. ZYRTEC [Concomitant]
  4. SINGULAIR [Concomitant]
  5. ACETYLSALICYLIC ACID SRT [Concomitant]
  6. ADVAIR DISKUS 100/50 [Concomitant]
  7. MAXAIR [Concomitant]

REACTIONS (5)
  - ABDOMINAL PAIN UPPER [None]
  - HEART RATE INCREASED [None]
  - MUSCULAR WEAKNESS [None]
  - NERVOUS SYSTEM DISORDER [None]
  - PARAESTHESIA [None]
